FAERS Safety Report 10620246 (Version 1)
Quarter: 2014Q4

REPORT INFORMATION
  Report Type: Spontaneous
  Country: KR (occurrence: None)
  Receive Date: 20141128
  Receipt Date: 20141128
  Transmission Date: 20150529
  Serious: Yes (Hospitalization)
  Sender: FDA-Public Use
  Company Number: 2014COR00138

PATIENT
  Age: 67 Year
  Sex: Female

DRUGS (1)
  1. CILOSTAZOL (CILOSTAZOL) UNKNOWN [Suspect]
     Active Substance: CILOSTAZOL

REACTIONS (2)
  - Spinal epidural haematoma [None]
  - Spinal cord compression [None]
